FAERS Safety Report 5313733-X (Version None)
Quarter: 2007Q1

REPORT INFORMATION
  Report Type: 
  Country: None (occurrence: None)
  Receive Date: 20070130
  Receipt Date: 20060308
  Transmission Date: 20070707
  Serious: Yes (Other)
  Sender: FDA-Public Use
  Company Number: 144870USA

PATIENT
  Sex: Male

DRUGS (2)
  1. COPAXONE [Suspect]
     Indication: MULTIPLE SCLEROSIS
     Dosage: (20 MG), SUBCUTANEOUS
     Route: 058
     Dates: start: 19990101
  2. FLUOXETINE [Concomitant]

REACTIONS (2)
  - DYSPNOEA [None]
  - INJECTION SITE DISCOLOURATION [None]
